FAERS Safety Report 22619987 (Version 1)
Quarter: 2023Q2

REPORT INFORMATION
  Report Type: Report from Study
  Country: US (occurrence: US)
  Receive Date: 20230620
  Receipt Date: 20230620
  Transmission Date: 20230721
  Serious: Yes (Death, Life-Threatening)
  Sender: FDA-Public Use
  Company Number: US-MYLANLABS-2023M1063780

PATIENT
  Age: 84 Year
  Sex: Female
  Weight: 62.6 kg

DRUGS (1)
  1. YUPELRI [Suspect]
     Active Substance: REVEFENACIN
     Indication: Chronic obstructive pulmonary disease
     Dosage: QD (175MCG/ 3ML)
     Route: 055
     Dates: start: 20230612, end: 20230612

REACTIONS (4)
  - Dyspnoea [Fatal]
  - Wheezing [Fatal]
  - Dizziness [Fatal]
  - Nausea [Fatal]

NARRATIVE: CASE EVENT DATE: 20230612
